FAERS Safety Report 19437909 (Version 7)
Quarter: 2021Q3

REPORT INFORMATION
  Report Type: Report from Study
  Country: US (occurrence: US)
  Receive Date: 20210618
  Receipt Date: 20210920
  Transmission Date: 20211014
  Serious: Yes (Other)
  Sender: FDA-Public Use
  Company Number: NVSC2021US132745

PATIENT
  Sex: Female

DRUGS (1)
  1. PIQRAY [Suspect]
     Active Substance: ALPELISIB
     Indication: BREAST CANCER
     Dosage: 300 MG, QD
     Route: 048
     Dates: start: 202105

REACTIONS (11)
  - Pain [Unknown]
  - Myocardial infarction [Unknown]
  - Asthenia [Unknown]
  - Taste disorder [Unknown]
  - Headache [Unknown]
  - Hyperglycaemia [Unknown]
  - Nausea [Recovering/Resolving]
  - Diarrhoea [Unknown]
  - Fatigue [Unknown]
  - Urinary incontinence [Unknown]
  - Pollakiuria [Unknown]
